FAERS Safety Report 7655695-6 (Version None)
Quarter: 2011Q3

REPORT INFORMATION
  Report Type: 
  Country: None (occurrence: None)
  Receive Date: 20110804
  Receipt Date: 20110730
  Transmission Date: 20111222
  Serious: Yes (Hospitalization, Other)
  Sender: FDA-Public Use
  Company Number: US-ABBOTT-11P-163-0842956-00

PATIENT
  Sex: Female
  Weight: 62.198 kg

DRUGS (5)
  1. PENTASA [Concomitant]
     Indication: PRODUCT USED FOR UNKNOWN INDICATION
  2. HUMIRA [Suspect]
     Dates: start: 20080101
  3. HUMIRA [Suspect]
     Indication: CROHN'S DISEASE
     Route: 058
     Dates: start: 20070101, end: 20080101
  4. MERCAPTOPURINE [Concomitant]
     Indication: PRODUCT USED FOR UNKNOWN INDICATION
  5. UNKNOWN LIST [Concomitant]
     Indication: PRODUCT USED FOR UNKNOWN INDICATION

REACTIONS (6)
  - HERPES ZOSTER [None]
  - BRONCHITIS [None]
  - ACUTE MYELOID LEUKAEMIA [None]
  - TONGUE NEOPLASM MALIGNANT STAGE UNSPECIFIED [None]
  - HAEMOPTYSIS [None]
  - NAUSEA [None]
